FAERS Safety Report 9473189 (Version 1)
Quarter: 2013Q3

REPORT INFORMATION
  Report Type: Spontaneous
  Country: US (occurrence: US)
  Receive Date: 20130823
  Receipt Date: 20130823
  Transmission Date: 20140515
  Serious: No
  Sender: FDA-Public Use
  Company Number: US-BRISTOL-MYERS SQUIBB COMPANY-18737536

PATIENT
  Age: 65 Year
  Sex: Female

DRUGS (2)
  1. SPRYCEL [Suspect]
     Indication: CHRONIC MYELOID LEUKAEMIA
     Dosage: 29MAR13:2ND DOSE
     Dates: start: 20130328
  2. BYSTOLIC [Concomitant]
     Indication: BLOOD PRESSURE

REACTIONS (1)
  - Nasopharyngitis [Unknown]
